FAERS Safety Report 13180897 (Version 1)
Quarter: 2017Q1

REPORT INFORMATION
  Report Type: Spontaneous
  Country: US (occurrence: US)
  Receive Date: 20170202
  Receipt Date: 20170202
  Transmission Date: 20170428
  Serious: No
  Sender: FDA-Public Use
  Company Number: US-SMITH AND NEPHEW, INC-2016SMT00259

PATIENT
  Age: 66 Year
  Sex: Male
  Weight: 94.33 kg

DRUGS (8)
  1. METOPROLOL. [Concomitant]
     Active Substance: METOPROLOL
     Dosage: 25 MG, 2X/DAY
  2. LYRICA [Concomitant]
     Active Substance: PREGABALIN
     Dosage: 75 MG, 2X/DAY
  3. GEMFIBROZIL. [Concomitant]
     Active Substance: GEMFIBROZIL
     Dosage: 600 MG, 1X/DAY
  4. INSULIN [Concomitant]
     Active Substance: INSULIN NOS
     Dosage: UNK, AS NEEDED
  5. CHLORDIAZEPOXIDE. [Concomitant]
     Active Substance: CHLORDIAZEPOXIDE
     Dosage: UNK, 2X/DAY
  6. REGRANEX [Suspect]
     Active Substance: BECAPLERMIN
     Indication: WOUND
     Dosage: UNK UNK, 1X/DAY
     Route: 061
     Dates: start: 201602, end: 20160314
  7. PRAMIPEXOLE. [Concomitant]
     Active Substance: PRAMIPEXOLE
     Dosage: 1 MG, 3X/DAY
  8. PANTOPRAZOLE [Concomitant]
     Active Substance: PANTOPRAZOLE SODIUM
     Dosage: 40 MG, 1X/DAY

REACTIONS (9)
  - Pain in extremity [Recovering/Resolving]
  - Peripheral swelling [Not Recovered/Not Resolved]
  - Application site swelling [Not Recovered/Not Resolved]
  - Purulent discharge [Unknown]
  - Tremor [Not Recovered/Not Resolved]
  - Malaise [Not Recovered/Not Resolved]
  - Pyrexia [Unknown]
  - Application site erythema [Unknown]
  - Wound complication [Unknown]

NARRATIVE: CASE EVENT DATE: 201603
